FAERS Safety Report 7064857-0 (Version None)
Quarter: 2010Q4

REPORT INFORMATION
  Report Type: 
  Country: None (occurrence: None)
  Receive Date: 20101027
  Receipt Date: 19900214
  Transmission Date: 20110411
  Serious: Yes (Death, Hospitalization)
  Sender: FDA-Public Use
  Company Number: US-ROCHE-900200203001

PATIENT
  Age: 44 Year
  Sex: Female

DRUGS (8)
  1. INTERFERON ALFA-2A [Suspect]
     Indication: COLON CANCER
     Route: 058
     Dates: start: 19900102, end: 19900209
  2. FLUOROURACIL [Suspect]
     Indication: COLON CANCER
     Route: 042
     Dates: start: 19900102, end: 19900107
  3. FLUOROURACIL [Suspect]
     Route: 042
     Dates: start: 19900117
  4. FLUOROURACIL [Suspect]
     Route: 042
     Dates: end: 19900209
  5. ZANTAC [Concomitant]
     Route: 065
  6. COMPAZINE [Concomitant]
     Route: 065
  7. DECADRON [Concomitant]
     Route: 065
  8. ACETAMINOPHEN [Concomitant]
     Route: 065

REACTIONS (10)
  - BLOOD BILIRUBIN INCREASED [None]
  - BLOOD CHOLESTEROL INCREASED [None]
  - BLOOD GLUCOSE INCREASED [None]
  - BLOOD TRIGLYCERIDES INCREASED [None]
  - DIARRHOEA [None]
  - ENCEPHALOPATHY [None]
  - FATIGUE [None]
  - HEPATIC ENZYME INCREASED [None]
  - LEUKOPENIA [None]
  - MALIGNANT NEOPLASM PROGRESSION [None]
